FAERS Safety Report 9661766 (Version 2)
Quarter: 2013Q4

REPORT INFORMATION
  Report Type: Spontaneous
  Country: US (occurrence: US)
  Receive Date: 20131031
  Receipt Date: 20131031
  Transmission Date: 20140711
  Serious: No
  Sender: FDA-Public Use
  Company Number: US-PURDUE-USA-2010-0046861

PATIENT
  Age: 49 Year
  Sex: Male

DRUGS (2)
  1. OXYCONTIN (NDA 22-272) [Suspect]
     Indication: PAIN
     Dosage: 80 MG, QID
     Dates: start: 20100830
  2. OXYCONTIN (NDA 22-272) [Suspect]
     Dosage: 40 MG, QID

REACTIONS (6)
  - General physical health deterioration [Unknown]
  - Pain [Unknown]
  - Nausea [Unknown]
  - Eructation [Unknown]
  - Intentional drug misuse [Unknown]
  - Dyspepsia [Unknown]
